FAERS Safety Report 9999781 (Version 1)
Quarter: 2014Q1

REPORT INFORMATION
  Report Type: Report from Study
  Country: DE (occurrence: DE)
  Receive Date: 20140312
  Receipt Date: 20140312
  Transmission Date: 20141002
  Serious: No
  Sender: FDA-Public Use
  Company Number: DE-SA-2014SA027610

PATIENT
  Age: 75 Year
  Sex: Female
  Weight: 62 kg

DRUGS (8)
  1. MULTAQ [Suspect]
     Indication: ATRIAL FIBRILLATION
     Route: 065
     Dates: start: 20120628, end: 201211
  2. BETA BLOCKING AGENTS [Concomitant]
     Dates: start: 200902
  3. VITAMIN K [Concomitant]
     Indication: PROPHYLAXIS
  4. METOPROLOL [Concomitant]
  5. SIMVASTATIN [Concomitant]
  6. SIOFOR [Concomitant]
  7. ARELIX [Concomitant]
  8. ONGLYZA [Concomitant]

REACTIONS (1)
  - Blood creatinine increased [Unknown]
